FAERS Safety Report 25323912 (Version 2)
Quarter: 2025Q3

REPORT INFORMATION
  Report Type: Spontaneous
  Country: EU (occurrence: EU)
  Receive Date: 20250516
  Receipt Date: 20250728
  Transmission Date: 20251021
  Serious: Yes (Other)
  Sender: ROCHE
  Company Number: EU-ROCHE-10000278621

PATIENT
  Age: 74 Year
  Sex: Male

DRUGS (2)
  1. LUNSUMIO [Suspect]
     Active Substance: MOSUNETUZUMAB-AXGB
     Indication: Follicular lymphoma refractory
     Route: 065
     Dates: start: 20240318, end: 20240829
  2. RITUXIMAB [Suspect]
     Active Substance: RITUXIMAB
     Indication: Follicular lymphoma
     Route: 065
     Dates: start: 20220207

REACTIONS (4)
  - Neutropenia [Not Recovered/Not Resolved]
  - Cytomegalovirus infection reactivation [Unknown]
  - Cytokine release syndrome [Unknown]
  - Disease progression [Unknown]
